FAERS Safety Report 10246575 (Version 2)
Quarter: 2014Q2

REPORT INFORMATION
  Report Type: Spontaneous
  Country: DE (occurrence: None)
  Receive Date: 20140617
  Receipt Date: 20140617
  Transmission Date: 20141212
  Serious: Yes (Hospitalization)
  Sender: FDA-Public Use
  Company Number: 7298082

PATIENT
  Age: 70 Year
  Sex: Female

DRUGS (3)
  1. EUTHYROX (LEVOTHYROXINE SODIUM) (LEVOTHYROXINE SODIUM) [Suspect]
     Indication: HYPOTHYROIDISM
     Dosage: (75 MCG), ORAL
     Route: 048
     Dates: start: 20140117, end: 20140427
  2. CONCOR COR [Concomitant]
  3. ASS (ACETYLSALICYLIC ACID) (ACETYLSALICYLIC ACID) [Concomitant]

REACTIONS (4)
  - Headache [None]
  - Product formulation issue [None]
  - Fatigue [None]
  - Blood pressure increased [None]
